FAERS Safety Report 8917576 (Version 1)
Quarter: 2012Q4

REPORT INFORMATION
  Report Type: 
  Country: US (occurrence: US)
  Receive Date: 20121120
  Receipt Date: 20121120
  Transmission Date: 20130627
  Serious: Yes (Hospitalization)
  Sender: FDA-Public Use
  Company Number: US-ROCHE-1152600

PATIENT
  Age: 58 Year
  Sex: Male

DRUGS (4)
  1. RIBAVIRIN [Suspect]
     Indication: HEPATITIS C
     Route: 048
  2. PEGINTERFERON ALFA-2B [Suspect]
     Indication: HEPATITIS C
     Route: 058
  3. ACETAMINOPHEN [Concomitant]
     Indication: PAIN
  4. SILDENAFIL [Concomitant]
     Indication: ERECTILE DYSFUNCTION

REACTIONS (1)
  - Catatonia [Recovered/Resolved]
